FAERS Safety Report 23416388 (Version 1)
Quarter: 2024Q1

REPORT INFORMATION
  Report Type: Spontaneous
  Country: MX (occurrence: MX)
  Receive Date: 20240118
  Receipt Date: 20240118
  Transmission Date: 20240410
  Serious: Yes (Other)
  Sender: FDA-Public Use
  Company Number: MX-BAYER-2024A010267

PATIENT
  Age: 41 Year
  Sex: Female

DRUGS (2)
  1. NEXAVAR [Suspect]
     Active Substance: SORAFENIB
     Indication: Bronchioloalveolar carcinoma
     Dosage: 400 MG, QD
     Dates: start: 20231014
  2. NEXAVAR [Suspect]
     Active Substance: SORAFENIB
     Indication: Bronchioloalveolar carcinoma
     Dosage: 400 MG, BID

REACTIONS (3)
  - Dermatosis [Not Recovered/Not Resolved]
  - Oral mucosal eruption [None]
  - Off label use [None]

NARRATIVE: CASE EVENT DATE: 20231014
